FAERS Safety Report 4336686-X (Version None)
Quarter: 2004Q2

REPORT INFORMATION
  Report Type: 
  Country: None (occurrence: None)
  Receive Date: 20040408
  Receipt Date: 20040331
  Transmission Date: 20050107
  Serious: No
  Sender: FDA-Public Use
  Company Number: 2004UW05171

PATIENT
  Age: 16 Year
  Sex: Female

DRUGS (2)
  1. SEROQUEL [Suspect]
     Dates: start: 20040102, end: 20040206
  2. ABILIFY [Concomitant]

REACTIONS (1)
  - NEUTROPHIL TOXIC GRANULATION PRESENT [None]
